FAERS Safety Report 9993677 (Version 2)
Quarter: 2014Q2

REPORT INFORMATION
  Report Type: Spontaneous
  Country: CA (occurrence: US)
  Receive Date: 20140310
  Receipt Date: 20140404
  Transmission Date: 20141212
  Serious: Yes (Hospitalization, Other)
  Sender: FDA-Public Use
  Company Number: CA-009507513-1403USA001401

PATIENT
  Age: 53 Year
  Sex: Female
  Weight: 86.17 kg

DRUGS (5)
  1. VICTRELIS [Suspect]
     Indication: HEPATITIS C
     Dosage: 800 MG, TID
     Route: 048
     Dates: start: 20131004, end: 20140209
  2. RIBAVIRIN [Suspect]
     Dosage: UNK
     Route: 048
     Dates: end: 20140206
  3. PEGASYS [Suspect]
     Indication: HEPATITIS C
     Dosage: 180 MICROGRAM, QD
     Route: 058
     Dates: start: 20131004, end: 20140209
  4. COPEGUS [Suspect]
     Indication: HEPATITIS C
     Dosage: UNK, BID
     Route: 048
     Dates: start: 20131004, end: 20140219
  5. CITALOPRAM [Concomitant]
     Route: 065

REACTIONS (6)
  - Pancytopenia [Recovering/Resolving]
  - Transfusion [Recovering/Resolving]
  - Anaemia [Recovered/Resolved]
  - Tympanic membrane perforation [Unknown]
  - Hepatitis C [Unknown]
  - Pain in extremity [Recovering/Resolving]
